FAERS Safety Report 10167918 (Version 1)
Quarter: 2014Q2

REPORT INFORMATION
  Report Type: Report from Study
  Country: BE (occurrence: BE)
  Receive Date: 20140512
  Receipt Date: 20140512
  Transmission Date: 20141212
  Serious: Yes (Hospitalization)
  Sender: FDA-Public Use
  Company Number: BE-009507513-1405BEL004400

PATIENT
  Age: 46 Year
  Sex: Female

DRUGS (3)
  1. BOCEPREVIR [Suspect]
     Indication: HEPATITIS C
     Dosage: STRENGTH 200 MG, 3XDAY, TOTAL DAILY DOSE 2400 MG
     Route: 048
     Dates: start: 20130912
  2. PEGINTRON [Suspect]
     Indication: HEPATITIS C
     Dosage: 80 MICROGRAM, QW
     Route: 048
     Dates: start: 20130912
  3. REBETOL [Suspect]
     Indication: HEPATITIS C
     Dosage: 2 X DAY
     Route: 048
     Dates: start: 20130912

REACTIONS (1)
  - Condition aggravated [Unknown]
